FAERS Safety Report 5060955-1 (Version None)
Quarter: 2006Q2

REPORT INFORMATION
  Report Type: 
  Country: None (occurrence: None)
  Receive Date: 20060630
  Receipt Date: 20060523
  Transmission Date: 20061013
  Serious: No
  Sender: FDA-Public Use
  Company Number: KDL180509

PATIENT
  Age: 70 Year
  Sex: Male

DRUGS (1)
  1. SENSIPAR [Suspect]
     Indication: HYPERPARATHYROIDISM SECONDARY
     Dosage: 120 MG, 1 IN 1 DAYS
     Dates: start: 20060101, end: 20060101

REACTIONS (1)
  - NAIL GROWTH ABNORMAL [None]
